FAERS Safety Report 9929510 (Version 2)
Quarter: 2014Q2

REPORT INFORMATION
  Report Type: Spontaneous
  Country: FR (occurrence: FR)
  Receive Date: 20140227
  Receipt Date: 20140425
  Transmission Date: 20141212
  Serious: Yes (Hospitalization)
  Sender: FDA-Public Use
  Company Number: FR-GLAXOSMITHKLINE-B0972139A

PATIENT
  Age: 14 Year
  Sex: Female
  Weight: 50.5 kg

DRUGS (2)
  1. ZOVIRAX [Suspect]
     Indication: HERPES ZOSTER MENINGOENCEPHALITIS
     Dosage: 700MG THREE TIMES PER DAY
     Route: 042
     Dates: start: 20140219
  2. PARACETAMOL [Concomitant]
     Indication: PAIN
     Route: 048
     Dates: start: 20140218, end: 20140227

REACTIONS (4)
  - Renal failure [Recovered/Resolved]
  - Renal pain [Recovered/Resolved]
  - Hepatocellular injury [Recovered/Resolved]
  - Abdominal pain upper [Recovered/Resolved]
